FAERS Safety Report 9411886 (Version 2)
Quarter: 2013Q4

REPORT INFORMATION
  Report Type: Report from Study
  Country: BR (occurrence: BR)
  Receive Date: 20130722
  Receipt Date: 20131022
  Transmission Date: 20140711
  Serious: Yes (Other)
  Sender: FDA-Public Use
  Company Number: PHHY2013BR077227

PATIENT
  Sex: Male
  Weight: 55 kg

DRUGS (1)
  1. TEGRETOL CR [Suspect]
     Indication: PARTIAL SEIZURES
     Dosage: 400 MG, TID
     Route: 048
     Dates: start: 2000

REACTIONS (1)
  - Epilepsy [Recovering/Resolving]
